FAERS Safety Report 9789532 (Version 1)
Quarter: 2013Q4

REPORT INFORMATION
  Report Type: Spontaneous
  Country: US (occurrence: US)
  Receive Date: 20131231
  Receipt Date: 20131231
  Transmission Date: 20140711
  Serious: No
  Sender: FDA-Public Use
  Company Number: US-BIOGENIDEC-2013BI123496

PATIENT
  Age: 55 Year
  Sex: Female

DRUGS (4)
  1. TYSABRI [Suspect]
     Indication: MULTIPLE SCLEROSIS
     Route: 042
     Dates: start: 20091210
  2. PROZAC [Concomitant]
     Route: 048
  3. XANAX [Concomitant]
     Route: 048
  4. PREVACID [Concomitant]
     Route: 048

REACTIONS (1)
  - Pyrexia [Unknown]
